FAERS Safety Report 19178111 (Version 1)
Quarter: 2021Q2

REPORT INFORMATION
  Report Type: Spontaneous
  Country: PT (occurrence: PT)
  Receive Date: 20210426
  Receipt Date: 20210426
  Transmission Date: 20210717
  Serious: Yes (Death, Other)
  Sender: FDA-Public Use
  Company Number: PT-SA-2021SA135923

PATIENT
  Age: 81 Year
  Sex: Female
  Weight: 65 kg

DRUGS (4)
  1. VALGANCICLOVIR. [Concomitant]
     Active Substance: VALGANCICLOVIR
  2. LEVOTHYROXINE. [Concomitant]
     Active Substance: LEVOTHYROXINE
  3. CAMPATH [Suspect]
     Active Substance: ALEMTUZUMAB
     Indication: CUTANEOUS T-CELL LYMPHOMA
     Route: 058
     Dates: start: 20210329
  4. COTRIMOXAZOLE [Concomitant]
     Active Substance: SULFAMETHOXAZOLE\TRIMETHOPRIM
     Indication: CUTANEOUS T-CELL LYMPHOMA
     Dosage: 10 MG, ADMINISTERED SUBCUTANEOUSLY, 3 TIMES A WEEK
     Route: 058
     Dates: start: 20210329

REACTIONS (6)
  - Hypotension [Fatal]
  - Malaise [Fatal]
  - Piloerection [Fatal]
  - Urinary incontinence [Fatal]
  - Loss of consciousness [Fatal]
  - Anal incontinence [Fatal]

NARRATIVE: CASE EVENT DATE: 20210329
